FAERS Safety Report 4494216-6 (Version None)
Quarter: 2004Q4

REPORT INFORMATION
  Report Type: 
  Country: None (occurrence: None)
  Receive Date: 20041102
  Receipt Date: 20041014
  Transmission Date: 20050328
  Serious: Yes (Life-Threatening, Hospitalization)
  Sender: FDA-Public Use
  Company Number: M2004-1611

PATIENT
  Age: 47 Year
  Sex: Female
  Weight: 75 kg

DRUGS (1)
  1. METFORMIN 850MG TABLETS [Suspect]
     Indication: DIABETES MELLITUS
     Dosage: 850MG T.I.D. , ORAL
     Route: 048
     Dates: start: 20030801, end: 20040620

REACTIONS (11)
  - ABSCESS [None]
  - ACUTE RESPIRATORY DISTRESS SYNDROME [None]
  - BRONCHOPNEUMONIA [None]
  - DIARRHOEA [None]
  - LACTIC ACIDOSIS [None]
  - MULTI-ORGAN FAILURE [None]
  - PLEURAL EFFUSION [None]
  - RENAL FAILURE [None]
  - RESPIRATORY FAILURE [None]
  - SHOCK [None]
  - VOMITING [None]
